FAERS Safety Report 4635982-6 (Version None)
Quarter: 2005Q2

REPORT INFORMATION
  Report Type: 
  Country: None (occurrence: None)
  Receive Date: 20050415
  Receipt Date: 20050408
  Transmission Date: 20051028
  Serious: Yes (Other)
  Sender: FDA-Public Use
  Company Number: US-BRISTOL-MYERS SQUIBB COMPANY-12926705

PATIENT
  Age: 50 Year
  Sex: Female
  Weight: 62 kg

DRUGS (11)
  1. EFAVIRENZ [Suspect]
     Route: 048
     Dates: start: 20011211
  2. COMBIVIR [Suspect]
     Route: 048
     Dates: start: 20011211
  3. TRIZIVIR [Suspect]
     Route: 048
     Dates: start: 20011211
  4. BLINDED: PLACEBO [Suspect]
     Route: 048
     Dates: start: 20011211
  5. DIFLUCAN [Concomitant]
     Dates: start: 20020916
  6. ZITHROMAX [Concomitant]
     Dates: start: 20021105
  7. NAPROXEN [Concomitant]
     Dates: start: 20021105
  8. SULFAMETHOXAZOLE [Concomitant]
     Dates: start: 20021105
  9. AMITRIPTYLINE HCL TAB [Concomitant]
     Dates: start: 20021105
  10. KETOPROFEN [Concomitant]
     Dates: start: 20021105
  11. NEXIUM [Concomitant]
     Dates: start: 20021105

REACTIONS (1)
  - LOW DENSITY LIPOPROTEIN INCREASED [None]
